FAERS Safety Report 5888722-7 (Version None)
Quarter: 2008Q3

REPORT INFORMATION
  Report Type: 
  Country: None (occurrence: None)
  Receive Date: 20080918
  Receipt Date: 20080909
  Transmission Date: 20090109
  Serious: Yes (Other)
  Sender: FDA-Public Use
  Company Number: US-JNJCH-2008023698

PATIENT
  Age: 71 Year
  Sex: Male
  Weight: 77.1 kg

DRUGS (2)
  1. BENADRYL [Suspect]
     Indication: NASOPHARYNGITIS
     Dosage: TEXT:2 KAPSEALS ONCE
     Route: 048
     Dates: start: 20080906, end: 20080906
  2. AMBIEN [Suspect]
     Indication: SLEEP DISORDER
     Dosage: TEXT:UNSPECIFIED
     Route: 048

REACTIONS (2)
  - CARDIAC FLUTTER [None]
  - HEART RATE IRREGULAR [None]
